FAERS Safety Report 23157297 (Version 1)
Quarter: 2023Q4

REPORT INFORMATION
  Report Type: Spontaneous
  Country: DE (occurrence: DE)
  Receive Date: 20231108
  Receipt Date: 20231108
  Transmission Date: 20240110
  Serious: Yes (Life-Threatening)
  Sender: FDA-Public Use
  Company Number: None

PATIENT
  Age: 69 Year
  Sex: Male
  Weight: 93 kg

DRUGS (36)
  1. ACTRAPID [Suspect]
     Active Substance: INSULIN HUMAN
     Indication: Diabetes mellitus
     Dosage: UNK
     Route: 042
     Dates: start: 19970417, end: 19970418
  2. ADALAT [Suspect]
     Active Substance: NIFEDIPINE
     Indication: Coronary artery disease
     Dosage: 2 ML
     Route: 042
     Dates: start: 19970417, end: 19970417
  3. ADALAT [Suspect]
     Active Substance: NIFEDIPINE
     Indication: Coronary artery disease
     Dosage: 2 DF
     Route: 048
     Dates: start: 19970405
  4. CHLORHEXIDINE [Concomitant]
     Active Substance: CHLORHEXIDINE\CHLORHEXIDINE GLUCONATE
     Indication: Stomatitis
     Dosage: UNK
     Route: 002
     Dates: start: 19970425
  5. DEPOT H INSULIN [Concomitant]
     Indication: Diabetes mellitus
     Dosage: UNK
     Route: 058
     Dates: start: 19970417
  6. DEXAMETHASONE SODIUM PHOSPHATE [Suspect]
     Active Substance: DEXAMETHASONE SODIUM PHOSPHATE
     Indication: Prophylaxis
     Dosage: 12 MG
     Route: 048
     Dates: start: 19970419, end: 19970426
  7. DEXAMETHASONE SODIUM PHOSPHATE [Suspect]
     Active Substance: DEXAMETHASONE SODIUM PHOSPHATE
     Indication: Prophylaxis
     Dosage: 12 MG
     Route: 048
     Dates: start: 19970416, end: 19970416
  8. URAPIDIL [Suspect]
     Active Substance: URAPIDIL
     Indication: Hypertension
     Dosage: 2 ML
     Route: 042
     Dates: start: 19970417, end: 19970418
  9. DIMETHINDENE [Concomitant]
     Active Substance: DIMETHINDENE
     Indication: Pruritus
     Dosage: 3 DF
     Route: 048
     Dates: start: 19970404, end: 19970420
  10. FLUIMUCIL [Suspect]
     Active Substance: ACETYLCYSTEINE
     Indication: Nasopharyngitis
     Dosage: 3
     Route: 048
     Dates: start: 19970408, end: 19970415
  11. FLUIMUCIL [Suspect]
     Active Substance: ACETYLCYSTEINE
     Indication: Nasopharyngitis
     Dosage: 3
     Route: 042
     Dates: start: 19970417, end: 19970418
  12. DEXAMETHASONE ACETATE [Suspect]
     Active Substance: DEXAMETHASONE ACETATE
     Indication: Prophylaxis
     Dosage: 32 MG
     Route: 042
     Dates: start: 19970417, end: 19970418
  13. DEXAMETHASONE ACETATE [Concomitant]
     Active Substance: DEXAMETHASONE ACETATE
     Indication: Prophylaxis
     Dosage: 12 MG
     Route: 048
     Dates: end: 19970415
  14. AMOXICILLIN\CLAVULANATE POTASSIUM [Suspect]
     Active Substance: AMOXICILLIN\CLAVULANATE POTASSIUM
     Indication: Infection prophylaxis
     Dosage: 6 G
     Route: 042
     Dates: start: 19970416, end: 19970419
  15. AMOXICILLIN\CLAVULANATE POTASSIUM [Suspect]
     Active Substance: AMOXICILLIN\CLAVULANATE POTASSIUM
     Indication: Infection prophylaxis
     Dosage: 6 G
     Route: 042
     Dates: start: 19970416, end: 19970419
  16. INTRAMIN G [Concomitant]
     Indication: Electrolyte substitution therapy
     Dosage: 1000 ML
     Route: 042
     Dates: start: 19970418, end: 19970418
  17. INTRAMIN G [Concomitant]
     Indication: Electrolyte substitution therapy
     Dosage: 1000 ML
     Route: 042
     Dates: start: 19970418, end: 19970418
  18. KCL [Concomitant]
     Active Substance: POTASSIUM CHLORIDE
     Indication: Hypokalaemia
     Dosage: UNK
     Route: 042
     Dates: start: 19970417, end: 19970419
  19. ACETYLCYSTEINE [Suspect]
     Active Substance: ACETYLCYSTEINE
     Indication: Nasopharyngitis
     Dosage: UNK MG
     Route: 048
     Dates: start: 19970416, end: 19970422
  20. FAMOTIDINE [Suspect]
     Active Substance: FAMOTIDINE
     Indication: Prophylaxis
     Dosage: 1
     Route: 042
     Dates: start: 19970426, end: 19970426
  21. PHENYTOIN CALCIUM [Suspect]
     Active Substance: PHENYTOIN CALCIUM
     Indication: Seizure prophylaxis
     Dosage: 1
     Route: 042
     Dates: start: 19970417, end: 19970417
  22. PHENYTOIN CALCIUM [Suspect]
     Active Substance: PHENYTOIN CALCIUM
     Indication: Seizure prophylaxis
     Dosage: 1
     Route: 042
     Dates: start: 19970426, end: 19970426
  23. RINGERS SOLUTION [Concomitant]
     Active Substance: CALCIUM CHLORIDE\POTASSIUM CHLORIDE\SODIUM CHLORIDE
     Indication: Fluid replacement
     Dosage: UNK ML
     Route: 042
     Dates: start: 19970417, end: 19970417
  24. TRAPIDIL [Concomitant]
     Active Substance: TRAPIDIL
     Indication: Coronary artery disease
     Dosage: 400 MG
     Route: 048
  25. CARBAMAZEPINE [Suspect]
     Active Substance: CARBAMAZEPINE
     Indication: Seizure prophylaxis
     Dosage: UNK MG
     Route: 048
     Dates: start: 19970424, end: 19970426
  26. HEPARIN SODIUM [Suspect]
     Active Substance: HEPARIN SODIUM
     Indication: Thrombosis prophylaxis
     Dosage: UNK IU
     Route: 058
     Dates: start: 19970417
  27. TRIAMCINOLONE [Concomitant]
     Active Substance: TRIAMCINOLONE
     Indication: Folliculitis
     Dosage: 2
     Route: 061
     Dates: start: 19970425
  28. DICLOFENAC [Suspect]
     Active Substance: DICLOFENAC
     Indication: Pain
     Dosage: 1 DF
     Route: 048
     Dates: end: 19970422
  29. ISOSORBIDE DINITRATE [Suspect]
     Active Substance: ISOSORBIDE DINITRATE
     Indication: Coronary artery disease
     Dosage: 40 MG
     Route: 048
     Dates: start: 19970405
  30. FAMOTIDINE [Suspect]
     Active Substance: FAMOTIDINE
     Indication: Prophylaxis
     Dosage: 1
     Route: 042
     Dates: start: 19970417, end: 19970417
  31. GENTAMICIN SULFATE [Suspect]
     Active Substance: GENTAMICIN SULFATE
     Indication: Eye disorder
     Dosage: 3
     Dates: start: 19970407, end: 19970421
  32. RINGER-LACTAT [Concomitant]
     Indication: Fluid replacement
     Dosage: 1000 ML
     Route: 042
     Dates: start: 19970418, end: 19970419
  33. TENORMIN [Concomitant]
     Active Substance: ATENOLOL
     Indication: Cardiac disorder
     Dosage: 25 MG
     Route: 048
  34. CLORAZEPATE DIPOTASSIUM [Suspect]
     Active Substance: CLORAZEPATE DIPOTASSIUM
     Indication: Sedative therapy
     Dosage: UNK
     Route: 048
     Dates: start: 19970416, end: 19970417
  35. PHENYTOIN [Suspect]
     Active Substance: PHENYTOIN
     Indication: Seizure prophylaxis
     Dosage: 4 DF
     Route: 048
     Dates: start: 19970403, end: 19970426
  36. INTRAMIN G [Concomitant]
     Indication: Electrolyte substitution therapy
     Dosage: 1000 ML
     Route: 042
     Dates: start: 19970418, end: 19970418

REACTIONS (1)
  - Stevens-Johnson syndrome [Recovered/Resolved]

NARRATIVE: CASE EVENT DATE: 19970425
